FAERS Safety Report 7431945-6 (Version None)
Quarter: 2011Q2

REPORT INFORMATION
  Report Type: 
  Country: None (occurrence: None)
  Receive Date: 20110422
  Receipt Date: 20110418
  Transmission Date: 20111010
  Serious: Yes (Hospitalization)
  Sender: FDA-Public Use
  Company Number: JP-PFIZER INC-2011085074

PATIENT
  Age: 71 Year
  Sex: Female

DRUGS (9)
  1. OMEPRAZOLE [Concomitant]
  2. SUNITINIB MALATE [Suspect]
     Indication: RENAL CELL CARCINOMA
     Dosage: 25 MG, UNK
     Route: 048
     Dates: start: 20091016, end: 20110330
  3. AZUNOL [Concomitant]
  4. LOXONIN [Concomitant]
  5. THYRADIN S [Concomitant]
  6. BONALFA [Concomitant]
  7. MYSER [Concomitant]
  8. EPADEL [Concomitant]
  9. INSIDE [Concomitant]

REACTIONS (1)
  - HERPES ZOSTER [None]
